FAERS Safety Report 15515283 (Version 1)
Quarter: 2018Q4

REPORT INFORMATION
  Report Type: Spontaneous
  Country: US (occurrence: US)
  Receive Date: 20181017
  Receipt Date: 20181017
  Transmission Date: 20190205
  Serious: No
  Sender: FDA-Public Use
  Company Number: US-B.I. PHARMACEUTICALS,INC./RIDGEFIELD-2018-BI-049806

PATIENT
  Age: 76 Year
  Sex: Female

DRUGS (1)
  1. STIOLTO RESPIMAT [Suspect]
     Active Substance: OLODATEROL HYDROCHLORIDE\TIOTROPIUM BROMIDE MONOHYDRATE
     Indication: DYSPNOEA
     Dosage: 2 PUFFS IN THE MORNING;   STRENGTH: 2.5 MCG; FORMULATION: INHALATION ACTION TAKEN : DOSE NOT CHANGED
     Route: 055
     Dates: start: 201809

REACTIONS (1)
  - Choking [Unknown]

NARRATIVE: CASE EVENT DATE: 201809
